FAERS Safety Report 12644175 (Version 1)
Quarter: 2016Q3

REPORT INFORMATION
  Report Type: Report from Study
  Country: CA (occurrence: CA)
  Receive Date: 20160811
  Receipt Date: 20160811
  Transmission Date: 20161109
  Serious: Yes (Other)
  Sender: FDA-Public Use
  Company Number: CA-ABBVIE-16K-028-1640203-00

PATIENT
  Age: 54 Year
  Sex: Male

DRUGS (3)
  1. HUMIRA [Suspect]
     Active Substance: ADALIMUMAB
     Route: 058
     Dates: start: 201605, end: 20160628
  2. HUMIRA [Suspect]
     Active Substance: ADALIMUMAB
     Indication: CROHN^S DISEASE
     Route: 058
     Dates: start: 20081125, end: 201605
  3. HUMIRA [Suspect]
     Active Substance: ADALIMUMAB
     Route: 058
     Dates: start: 20160628

REACTIONS (13)
  - Chapped lips [Not Recovered/Not Resolved]
  - Gastrointestinal pain [Not Recovered/Not Resolved]
  - Eye swelling [Not Recovered/Not Resolved]
  - Lip swelling [Not Recovered/Not Resolved]
  - Abdominal pain [Recovered/Resolved]
  - Drug level decreased [Unknown]
  - Diarrhoea [Recovered/Resolved]
  - Abnormal faeces [Not Recovered/Not Resolved]
  - Anal incontinence [Not Recovered/Not Resolved]
  - Crohn^s disease [Not Recovered/Not Resolved]
  - Diarrhoea [Not Recovered/Not Resolved]
  - Haematochezia [Recovered/Resolved]
  - Frequent bowel movements [Not Recovered/Not Resolved]

NARRATIVE: CASE EVENT DATE: 2016
